FAERS Safety Report 8968201 (Version 2)
Quarter: 2013Q1

REPORT INFORMATION
  Report Type: Spontaneous
  Country: DE (occurrence: None)
  Receive Date: 20121210
  Receipt Date: 20121213
  Transmission Date: 20140127
  Serious: Yes (Other)
  Sender: FDA-Public Use
  Company Number: AUR-APL-2012-05118

PATIENT
  Sex: Female
  Weight: 3.7 kg

DRUGS (3)
  1. SERTRALINE (SERTRALINE) (SERTRALINE) [Suspect]
     Indication: DEPRESSION
     Dosage: (50 MG, 1 D), TRANSPLACENTAL ?
     Route: 064
  2. MIRTAZAPINE (MIRTAZAPINE) [Suspect]
     Indication: DEPRESSION
     Dosage: 1 D
     Route: 064
     Dates: start: 201112
  3. CENTRUM MATERNA (CENTRUM / 00554501/ ) [Suspect]

REACTIONS (5)
  - Apnoea neonatal [None]
  - Convulsion neonatal [None]
  - Oxygen saturation decreased [None]
  - Myoclonus [None]
  - Maternal drugs affecting foetus [None]
